FAERS Safety Report 24710859 (Version 1)
Quarter: 2024Q4

REPORT INFORMATION
  Report Type: Spontaneous
  Country: CN (occurrence: CN)
  Receive Date: 20241209
  Receipt Date: 20241209
  Transmission Date: 20250115
  Serious: Yes (Other)
  Sender: CHEPLAPHARM
  Company Number: None

PATIENT
  Age: 60 Year
  Sex: Male

DRUGS (6)
  1. CAPECITABINE [Suspect]
     Active Substance: CAPECITABINE
     Indication: Sarcomatoid carcinoma
     Dosage: 1.5 G, D1-D14?DAILY DOSE: 1.5 GRAM
     Dates: start: 20230610, end: 20230616
  2. CAPECITABINE [Suspect]
     Active Substance: CAPECITABINE
     Indication: Neoplasm malignant
     Dosage: 1.5 G, D1-D14?DAILY DOSE: 1.5 GRAM
     Dates: start: 20230610, end: 20230616
  3. DOCETAXEL [Suspect]
     Active Substance: DOCETAXEL
     Indication: Neoplasm malignant
     Dosage: 350 MG, D1?DAILY DOSE: 350 MILLIGRAM
     Dates: start: 20230610, end: 20230610
  4. DOCETAXEL [Suspect]
     Active Substance: DOCETAXEL
     Indication: Sarcomatoid carcinoma
     Dosage: 350 MG, D1?DAILY DOSE: 350 MILLIGRAM
     Dates: start: 20230610, end: 20230610
  5. CISPLATIN [Suspect]
     Active Substance: CISPLATIN
     Indication: Neoplasm malignant
     Dosage: 60 MG, ON D1-D2
     Dates: start: 20230610, end: 20230611
  6. CISPLATIN [Suspect]
     Active Substance: CISPLATIN
     Indication: Sarcomatoid carcinoma
     Dosage: 60 MG, ON D1-D2
     Dates: start: 20230610, end: 20230611

REACTIONS (3)
  - Seizure [Unknown]
  - Anaemia [Unknown]
  - Off label use [Recovered/Resolved]

NARRATIVE: CASE EVENT DATE: 20230610
